FAERS Safety Report 4751297-X (Version None)
Quarter: 2005Q3

REPORT INFORMATION
  Report Type: 
  Country: None (occurrence: None)
  Receive Date: 20050822
  Receipt Date: 20050822
  Transmission Date: 20060218
  Serious: Yes (Other)
  Sender: FDA-Public Use
  Company Number: None

PATIENT
  Age: 61 Year
  Sex: Female
  Weight: 70.3075 kg

DRUGS (1)
  1. NARDIL [Suspect]
     Dosage: 15MG   TWICE A DAY   PO
     Route: 048

REACTIONS (5)
  - ANXIETY [None]
  - DRUG TOLERANCE INCREASED [None]
  - IMPAIRED WORK ABILITY [None]
  - PANIC REACTION [None]
  - PHARMACEUTICAL PRODUCT COMPLAINT [None]
